FAERS Safety Report 9150483 (Version 1)
Quarter: 2013Q1

REPORT INFORMATION
  Report Type: Spontaneous
  Country: FR (occurrence: FR)
  Receive Date: 20130308
  Receipt Date: 20130308
  Transmission Date: 20140127
  Serious: Yes (Hospitalization, Other)
  Sender: FDA-Public Use
  Company Number: FR-TEVA-389506ISR

PATIENT
  Age: 25 Year
  Sex: Female

DRUGS (1)
  1. LEELOO [Suspect]
     Indication: CONTRACEPTION
     Dosage: 1 DOSAGE FORMS DAILY;
     Route: 048
     Dates: start: 201202, end: 20130205

REACTIONS (3)
  - Pregnancy [Recovered/Resolved]
  - Drug ineffective [Recovered/Resolved]
  - Abortion induced [Recovered/Resolved]
